FAERS Safety Report 12693536 (Version 1)
Quarter: 2016Q3

REPORT INFORMATION
  Report Type: Spontaneous
  Country: US (occurrence: None)
  Receive Date: 20160826
  Receipt Date: 20160826
  Transmission Date: 20161109
  Serious: No
  Sender: FDA-Public Use
  Company Number: None

PATIENT
  Age: 45 Year
  Sex: Female

DRUGS (17)
  1. TOVIAZ [Concomitant]
     Active Substance: FESOTERODINE FUMARATE
  2. ENBREL [Suspect]
     Active Substance: ETANERCEPT
     Indication: ANKYLOSING SPONDYLITIS
     Route: 058
     Dates: start: 201607
  3. CEVIMOLINE [Concomitant]
  4. FOLIC ACID. [Concomitant]
     Active Substance: FOLIC ACID
  5. MELOXICAM. [Concomitant]
     Active Substance: MELOXICAM
  6. MUPIROCIN. [Concomitant]
     Active Substance: MUPIROCIN
  7. MYRBETRIQ [Concomitant]
     Active Substance: MIRABEGRON
  8. METHOCARBAM [Concomitant]
  9. LISINOPRIL. [Concomitant]
     Active Substance: LISINOPRIL
  10. ANJCORT-HC [Concomitant]
  11. TRAMADOL. [Concomitant]
     Active Substance: TRAMADOL
  12. METFORMIN [Concomitant]
     Active Substance: METFORMIN HYDROCHLORIDE
  13. OMEPRAZOLE. [Concomitant]
     Active Substance: OMEPRAZOLE
  14. VENLAFAZINE [Concomitant]
  15. FLUCONAZOLE. [Concomitant]
     Active Substance: FLUCONAZOLE
  16. METRONIDAZOL [Concomitant]
     Active Substance: METRONIDAZOLE
  17. ONDANSETRON [Concomitant]
     Active Substance: ONDANSETRON

REACTIONS (2)
  - Therapy cessation [None]
  - Cyst [None]

NARRATIVE: CASE EVENT DATE: 201608
